FAERS Safety Report 13339022 (Version 1)
Quarter: 2017Q1

REPORT INFORMATION
  Report Type: Spontaneous
  Country: US (occurrence: US)
  Receive Date: 20170315
  Receipt Date: 20170315
  Transmission Date: 20170428
  Serious: No
  Sender: FDA-Public Use
  Company Number: US-CELGENEUS-USA-2017032416

PATIENT
  Sex: Female
  Weight: 47.67 kg

DRUGS (6)
  1. REVLIMID [Suspect]
     Active Substance: LENALIDOMIDE
     Dosage: 15-4 MG
     Route: 048
     Dates: start: 201401
  2. REVLIMID [Suspect]
     Active Substance: LENALIDOMIDE
     Dosage: 2-3 MG
     Route: 048
     Dates: start: 201408
  3. REVLIMID [Suspect]
     Active Substance: LENALIDOMIDE
     Dosage: 2-3 MG
     Route: 048
     Dates: start: 201408
  4. REVLIMID [Suspect]
     Active Substance: LENALIDOMIDE
     Dosage: 15-2 MG
     Route: 048
     Dates: start: 201611
  5. REVLIMID [Suspect]
     Active Substance: LENALIDOMIDE
     Indication: PLASMA CELL MYELOMA
     Dosage: 25 MILLIGRAM
     Route: 048
     Dates: start: 201301
  6. REVLIMID [Suspect]
     Active Substance: LENALIDOMIDE
     Dosage: 3 MILLIGRAM
     Route: 048
     Dates: start: 201703

REACTIONS (2)
  - Body height decreased [Unknown]
  - Weight decreased [Unknown]
